FAERS Safety Report 7900899-8 (Version None)
Quarter: 2011Q4

REPORT INFORMATION
  Report Type: 
  Country: None (occurrence: None)
  Receive Date: 20111108
  Receipt Date: 20111025
  Transmission Date: 20120403
  Serious: Yes (Other)
  Sender: FDA-Public Use
  Company Number: JP-ELI_LILLY_AND_COMPANY-JP201110002194

PATIENT
  Sex: Male

DRUGS (12)
  1. REMERON [Concomitant]
     Dosage: UNK
     Route: 048
     Dates: start: 20110318, end: 20110324
  2. REMERON [Concomitant]
     Dosage: UNK
     Route: 048
     Dates: start: 20110325
  3. CYMBALTA [Suspect]
     Dosage: 40 MG, QD
     Route: 048
     Dates: start: 20110401, end: 20110407
  4. CYMBALTA [Suspect]
     Dosage: UNK
     Route: 048
     Dates: start: 20110902, end: 20110915
  5. CYMBALTA [Suspect]
     Indication: DEPRESSION
     Dosage: 20 MG, QD
     Route: 048
     Dates: start: 20110325, end: 20110331
  6. CYMBALTA [Suspect]
     Dosage: 60 MG, QD
     Route: 048
     Dates: start: 20111002
  7. CYMBALTA [Suspect]
     Dosage: 60 MG, QD
     Route: 048
     Dates: start: 20110408, end: 20110901
  8. REMERON [Concomitant]
     Indication: DEPRESSION
     Dosage: UNK
     Route: 048
     Dates: start: 20110304, end: 20110310
  9. REMERON [Concomitant]
     Dosage: UNK
     Route: 048
     Dates: start: 20110311, end: 20110317
  10. CYMBALTA [Suspect]
     Dosage: UNK
     Route: 048
     Dates: start: 20110916, end: 20110922
  11. CYMBALTA [Suspect]
     Dosage: UNK
     Route: 048
     Dates: start: 20110923, end: 20111001
  12. PL GRAN. [Concomitant]
     Indication: NASOPHARYNGITIS
     Dosage: UNK
     Route: 048
     Dates: start: 20110930, end: 20111002

REACTIONS (2)
  - OVERDOSE [None]
  - EPILEPSY [None]
